FAERS Safety Report 25446891 (Version 1)
Quarter: 2025Q2

REPORT INFORMATION
  Report Type: Report from Study
  Country: AR (occurrence: AR)
  Receive Date: 20250617
  Receipt Date: 20250617
  Transmission Date: 20250717
  Serious: Yes (Other)
  Sender: ABBVIE
  Company Number: AR-ABBVIE-6327638

PATIENT
  Age: 15 Year
  Sex: Female

DRUGS (1)
  1. HUMIRA [Suspect]
     Active Substance: ADALIMUMAB
     Indication: Hidradenitis
     Dosage: AC 80/0.8
     Route: 058
     Dates: start: 20240814, end: 202411

REACTIONS (2)
  - Hypoacusis [Unknown]
  - Ear infection [Unknown]

NARRATIVE: CASE EVENT DATE: 20241201
